FAERS Safety Report 16904739 (Version 1)
Quarter: 2019Q4

REPORT INFORMATION
  Report Type: Report from Study
  Country: CA (occurrence: CA)
  Receive Date: 20191010
  Receipt Date: 20191010
  Transmission Date: 20200122
  Serious: Yes (Other)
  Sender: FDA-Public Use
  Company Number: CA-JNJFOC-20190712971

PATIENT
  Age: 72 Year
  Sex: Male

DRUGS (3)
  1. CEFALEXIN [Concomitant]
     Active Substance: CEPHALEXIN
     Indication: ABSCESS
  2. CEFALEXIN [Concomitant]
     Active Substance: CEPHALEXIN
     Indication: CYST
     Route: 065
     Dates: start: 20190705, end: 20190712
  3. STELARA [Suspect]
     Active Substance: USTEKINUMAB
     Indication: CROHN^S DISEASE
     Dosage: STRENGTH = 90 MG
     Route: 058
     Dates: start: 20180615

REACTIONS (2)
  - Abscess [Recovered/Resolved]
  - Lower respiratory tract infection [Recovered/Resolved]

NARRATIVE: CASE EVENT DATE: 20190409
